FAERS Safety Report 7399227-9 (Version None)
Quarter: 2011Q1

REPORT INFORMATION
  Report Type: 
  Country: None (occurrence: None)
  Receive Date: 20110328
  Receipt Date: 20110310
  Transmission Date: 20110831
  Serious: Yes (Hospitalization)
  Sender: FDA-Public Use
  Company Number: ADE2009-0482

PATIENT
  Age: 73 Year
  Sex: Female

DRUGS (3)
  1. METFORMIN (MANUFACTURER UNKNOWN) [Suspect]
     Indication: TYPE 2 DIABETES MELLITUS
     Dosage: ORAL
     Route: 048
  2. ANTIHYPERTENSIVE [Concomitant]
  3. ANGIOTENSIN II RECEPTOR BLOCKER [Concomitant]

REACTIONS (6)
  - RENAL FAILURE ACUTE [None]
  - HAEMODIALYSIS [None]
  - DIARRHOEA [None]
  - LACTIC ACIDOSIS [None]
  - LETHARGY [None]
  - HYPOTENSION [None]
